FAERS Safety Report 24223090 (Version 1)
Quarter: 2024Q3

REPORT INFORMATION
  Report Type: Spontaneous
  Country: DE (occurrence: DE)
  Receive Date: 20240819
  Receipt Date: 20240819
  Transmission Date: 20241016
  Serious: Yes (Other)
  Sender: SANDOZ
  Company Number: DE-002147023-NVSC2021DE284220

PATIENT
  Sex: Female
  Weight: 88 kg

DRUGS (11)
  1. FULVESTRANT [Suspect]
     Active Substance: FULVESTRANT
     Indication: Hormone receptor positive HER2 negative breast cancer
     Dosage: 500 MG, Q2W
     Route: 030
     Dates: start: 20190807, end: 20190903
  2. FULVESTRANT [Suspect]
     Active Substance: FULVESTRANT
     Dosage: 500 MG, Q4W
     Route: 030
     Dates: start: 20190904
  3. KISQALI [Suspect]
     Active Substance: RIBOCICLIB
     Dosage: 200 MG, QD (REGIMEN 21 DAYS, 7 DAYS PAUSE)
     Route: 048
     Dates: start: 20200804, end: 20211207
  4. KISQALI [Suspect]
     Active Substance: RIBOCICLIB
     Dosage: 200 MG, QD (REGIMEN 21 DAYS, 7 DAYS PAUSE)
     Route: 048
     Dates: start: 20220106
  5. KISQALI [Suspect]
     Active Substance: RIBOCICLIB
     Dosage: 400 MG, QD (REGIMEN 21 DAYS, 7 DAYS PAUSE)
     Route: 048
     Dates: start: 20200424, end: 20200504
  6. KISQALI [Suspect]
     Active Substance: RIBOCICLIB
     Dosage: 400 MG, QD (REGIMEN 21 DAYS, 7 DAYS PAUSE)
     Route: 048
     Dates: start: 20200511, end: 20200803
  7. KISQALI [Suspect]
     Active Substance: RIBOCICLIB
     Dosage: 600 MG, QD (REGIMEN 21 DAYS, 7 DAYS PAUSE)
     Route: 048
     Dates: start: 20190529, end: 20190806
  8. KISQALI [Suspect]
     Active Substance: RIBOCICLIB
     Dosage: 600 MG, QD (REGIMEN 21 DAYS, 7 DAYS PAUSE)
     Route: 048
     Dates: start: 20190807, end: 20191024
  9. KISQALI [Suspect]
     Active Substance: RIBOCICLIB
     Dosage: 600 MG, QD (REGIMEN 21 DAYS, 7 DAYS PAUSE)
     Route: 048
     Dates: start: 20191120, end: 20200423
  10. KISQALI [Suspect]
     Active Substance: RIBOCICLIB
     Indication: Hormone receptor positive HER2 negative breast cancer
     Dosage: 600 MG (REGIMEN 21 DAYS, 7 DAYS PAUSE)
     Route: 048
     Dates: start: 20190129, end: 20190521
  11. LETROZOLE [Concomitant]
     Active Substance: LETROZOLE
     Indication: Hormone receptor positive HER2 negative breast cancer
     Dosage: 2.5 MG, QD
     Route: 048
     Dates: start: 20190129, end: 20190806

REACTIONS (2)
  - Blood creatinine increased [Recovering/Resolving]
  - Glomerular filtration rate decreased [Recovering/Resolving]

NARRATIVE: CASE EVENT DATE: 20211207
